FAERS Safety Report 23659283 (Version 1)
Quarter: 2024Q1

REPORT INFORMATION
  Report Type: Spontaneous
  Country: CN (occurrence: None)
  Receive Date: 20240321
  Receipt Date: 20240321
  Transmission Date: 20240409
  Serious: Yes (Hospitalization)
  Sender: FDA-Public Use
  Company Number: 2024A064958

PATIENT
  Age: 61 Year
  Sex: Male
  Weight: 56 kg

DRUGS (1)
  1. OSIMERTINIB MESYLATE [Suspect]
     Active Substance: OSIMERTINIB MESYLATE
     Indication: Lung adenocarcinoma
     Route: 048
     Dates: start: 20210305, end: 20240120

REACTIONS (4)
  - Pneumonia [Recovering/Resolving]
  - Interstitial lung disease [Unknown]
  - Oliguria [Unknown]
  - Hypotension [Unknown]

NARRATIVE: CASE EVENT DATE: 20240228
